FAERS Safety Report 8237895 (Version 4)
Quarter: 2013Q2

REPORT INFORMATION
  Report Type: Spontaneous
  Country: DK (occurrence: DK)
  Receive Date: 20111109
  Receipt Date: 20130520
  Transmission Date: 20140414
  Serious: Yes (Death, Life-Threatening, Hospitalization)
  Sender: FDA-Public Use
  Company Number: DK-BAYER-2011-107820

PATIENT
  Age: 21 Year
  Sex: Female

DRUGS (9)
  1. YASMIN [Suspect]
     Indication: CONTRACEPTION
     Dosage: UNK
     Route: 048
     Dates: start: 20060612, end: 20111022
  2. PREDNISOLON [Concomitant]
     Indication: SCLERODERMA
  3. IPREN [Concomitant]
     Indication: PAIN
  4. ALNOK [Concomitant]
  5. SALAZOPYRIN [Concomitant]
     Indication: SCLERODERMA
     Dosage: 1000MG
  6. SALAZOPYRIN [Concomitant]
     Indication: SCLERODERMA
  7. ESOMEPRAZOLE [Concomitant]
     Indication: DYSPEPSIA
     Dosage: 40MG
  8. ESOMEPRAZOLE [Concomitant]
     Indication: DYSPEPSIA
  9. PANODIL [Concomitant]
     Indication: PAIN

REACTIONS (2)
  - Intracranial venous sinus thrombosis [Fatal]
  - Coma [Fatal]
